FAERS Safety Report 5477078-X (Version None)
Quarter: 2007Q4

REPORT INFORMATION
  Report Type: 
  Country: None (occurrence: None)
  Receive Date: 20071004
  Receipt Date: 20070921
  Transmission Date: 20080405
  Serious: Yes (Life-Threatening, Hospitalization)
  Sender: FDA-Public Use
  Company Number: FR-BRISTOL-MYERS SQUIBB COMPANY-13926506

PATIENT
  Age: 21 Year
  Sex: Female

DRUGS (4)
  1. ENDOXAN [Suspect]
     Indication: NEUROBLASTOMA
     Route: 042
     Dates: start: 19870101, end: 19880101
  2. ADRIAMYCIN PFS [Suspect]
     Indication: NEUROBLASTOMA
     Dates: start: 19870101, end: 19880101
  3. ONCOVIN [Suspect]
     Indication: NEUROBLASTOMA
     Dates: start: 19870101, end: 19880101
  4. DEPAKENE [Concomitant]
     Indication: EPILEPSY
     Dates: start: 19960101, end: 19990101

REACTIONS (4)
  - CARDIAC FAILURE [None]
  - LEFT VENTRICULAR DYSFUNCTION [None]
  - LEFT VENTRICULAR FAILURE [None]
  - MYOCARDIAL FIBROSIS [None]
